FAERS Safety Report 6744191-6 (Version None)
Quarter: 2010Q2

REPORT INFORMATION
  Report Type: 
  Country: None (occurrence: None)
  Receive Date: 20100525
  Receipt Date: 20100514
  Transmission Date: 20101027
  Serious: Yes (Hospitalization)
  Sender: FDA-Public Use
  Company Number: 008609

PATIENT
  Sex: Male
  Weight: 98 kg

DRUGS (3)
  1. NEUPRO [Suspect]
     Indication: PARKINSON'S DISEASE
     Dosage: 4 MG QD TRANSDERMAL, 6 MG QD TRANSDERMAL
     Route: 062
     Dates: start: 20080617
  2. NEUPRO [Suspect]
     Indication: PARKINSON'S DISEASE
     Dosage: 4 MG QD TRANSDERMAL, 6 MG QD TRANSDERMAL
     Route: 062
     Dates: start: 20100218
  3. BISOPROLOL [Concomitant]

REACTIONS (2)
  - ARTHROPATHY [None]
  - MOTOR DYSFUNCTION [None]
